FAERS Safety Report 21279570 (Version 1)
Quarter: 2022Q3

REPORT INFORMATION
  Report Type: Spontaneous
  Country: US (occurrence: None)
  Receive Date: 20220831
  Receipt Date: 20220831
  Transmission Date: 20221027
  Serious: Yes (Death)
  Sender: FDA-Public Use
  Company Number: None

PATIENT
  Sex: Male

DRUGS (3)
  1. TEMOZOLOMIDE [Suspect]
     Active Substance: TEMOZOLOMIDE
     Indication: Brain neoplasm malignant
     Dosage: TAKE 1 CAPSULE BY MOUTH ONCE DAILY ON AN EMPTY STOMACH ON DAYS 1 TO 5 EVERY 28 DAYS CYCLE. TAKE WITH
     Route: 048
     Dates: start: 20220611
  2. ATENTOLOL TAB [Concomitant]
  3. ONDANSETRON TAB [Concomitant]

REACTIONS (1)
  - Death [None]
